FAERS Safety Report 5042802-7 (Version None)
Quarter: 2006Q3

REPORT INFORMATION
  Report Type: 
  Country: None (occurrence: None)
  Receive Date: 20060705
  Receipt Date: 20040713
  Transmission Date: 20061208
  Serious: Yes (Death, Hospitalization)
  Sender: FDA-Public Use
  Company Number: NO-ROCHE-374241

PATIENT
  Age: 73 Year
  Sex: Female
  Weight: 44 kg

DRUGS (3)
  1. CAPECITABINE [Suspect]
     Dosage: TWO WEEK TREATMENT AND ONE WEEK REST.
     Route: 048
     Dates: start: 20040628, end: 20040711
  2. BLINDED BEVACIZUMAB [Suspect]
     Route: 042
     Dates: start: 20040628, end: 20040711
  3. OXALIPLATIN [Suspect]
     Route: 042
     Dates: start: 20040628, end: 20040711

REACTIONS (10)
  - BLOOD POTASSIUM DECREASED [None]
  - C-REACTIVE PROTEIN INCREASED [None]
  - DEHYDRATION [None]
  - DIARRHOEA [None]
  - HYPOKALAEMIA [None]
  - INFECTION [None]
  - LEUKOPENIA [None]
  - NAUSEA [None]
  - NEUTROPENIA [None]
  - THROMBOCYTOPENIA [None]
